FAERS Safety Report 13622334 (Version 1)
Quarter: 2017Q2

REPORT INFORMATION
  Report Type: Spontaneous
  Country: US (occurrence: US)
  Receive Date: 20170607
  Receipt Date: 20170607
  Transmission Date: 20170830
  Serious: No
  Sender: FDA-Public Use
  Company Number: US-ROCHE-1172402

PATIENT

DRUGS (2)
  1. ROMAZICON [Suspect]
     Active Substance: FLUMAZENIL
     Indication: REVERSAL OF SEDATION
     Route: 065
  2. ROMAZICON [Suspect]
     Active Substance: FLUMAZENIL
     Indication: HYPOVENTILATION

REACTIONS (1)
  - Drug ineffective [Unknown]
